FAERS Safety Report 19755264 (Version 2)
Quarter: 2021Q4

REPORT INFORMATION
  Report Type: Spontaneous
  Country: US (occurrence: US)
  Receive Date: 20210827
  Receipt Date: 20211001
  Transmission Date: 20220303
  Serious: No
  Sender: FDA-Public Use
  Company Number: US-PFIZER INC-202100983461

PATIENT
  Age: 15 Year
  Sex: Male
  Weight: 43.54 kg

DRUGS (1)
  1. GENOTROPIN [Suspect]
     Active Substance: SOMATROPIN
     Indication: Growth hormone deficiency
     Dosage: 1.6 MG, DAILY (1.6MG EVERY DAY INJECTION)

REACTIONS (2)
  - Drug dose omission by device [Unknown]
  - Device use error [Unknown]

NARRATIVE: CASE EVENT DATE: 20210729
